FAERS Safety Report 9165961 (Version 2)
Quarter: 2014Q1

REPORT INFORMATION
  Report Type: Report from Study
  Country: CA (occurrence: CA)
  Receive Date: 20130315
  Receipt Date: 20140312
  Transmission Date: 20141002
  Serious: Yes (Hospitalization)
  Sender: FDA-Public Use
  Company Number: CA-ROCHE-1197555

PATIENT
  Age: 59 Year
  Sex: Female
  Weight: 52 kg

DRUGS (13)
  1. TRASTUZUMAB EMTANSINE [Suspect]
     Indication: BREAST CANCER
     Dosage: DOSE PRIOR TO SAE : 26/FEB/2013
     Route: 042
     Dates: start: 20121204
  2. TRASTUZUMAB [Suspect]
     Indication: PRODUCT USED FOR UNKNOWN INDICATION
     Dosage: LAST DOSE PRIOR TO SAE : 27/NOV/2012
     Route: 042
     Dates: start: 20120918, end: 20121127
  3. VINORELBINE [Suspect]
     Indication: PRODUCT USED FOR UNKNOWN INDICATION
     Dosage: LAST DOSE PRIOR TO SAE : 23/OCT/2012
     Route: 042
     Dates: start: 20120828, end: 20121023
  4. MORPHINE [Concomitant]
     Indication: TUMOUR PAIN
     Route: 065
     Dates: start: 201205
  5. IBUPROPHENUM [Concomitant]
     Indication: TUMOUR PAIN
     Route: 065
     Dates: start: 201205
  6. SENOKOT [Concomitant]
     Indication: CONSTIPATION
     Route: 065
     Dates: start: 201205
  7. COLACE [Concomitant]
     Indication: CONSTIPATION
     Route: 065
     Dates: start: 201205
  8. HYDROMORPHONE [Concomitant]
     Indication: TUMOUR PAIN
     Route: 065
     Dates: start: 20120918
  9. DILAUDID [Concomitant]
     Indication: TUMOUR PAIN
     Route: 065
     Dates: start: 20120918
  10. REACTINE (CANADA) [Concomitant]
     Indication: PRURITUS
     Route: 065
     Dates: start: 20121127
  11. CALCIUM CARBONATE [Concomitant]
     Indication: BLOOD CALCIUM DECREASED
     Route: 065
     Dates: start: 20121127
  12. METROGEL [Concomitant]
     Indication: WOUND INFECTION
     Route: 065
     Dates: start: 20121231
  13. COLD COMPRESS [Concomitant]
     Indication: BURNING SENSATION
     Route: 061
     Dates: start: 20130122

REACTIONS (1)
  - Tumour necrosis [Recovered/Resolved]
